FAERS Safety Report 15658036 (Version 1)
Quarter: 2018Q4

REPORT INFORMATION
  Report Type: Spontaneous
  Country: US (occurrence: US)
  Receive Date: 20181115
  Receipt Date: 20181115
  Transmission Date: 20190205
  Serious: No
  Sender: FDA-Public Use
  Company Number: None

PATIENT
  Age: 11 Year
  Sex: Female
  Weight: 45.4 kg

DRUGS (6)
  1. ONCASPAR [Suspect]
     Active Substance: PEGASPARGASE
     Dates: end: 20181022
  2. VINCRISTINE SULFATE. [Suspect]
     Active Substance: VINCRISTINE SULFATE
     Dates: end: 200911
  3. PREDNISONE. [Suspect]
     Active Substance: PREDNISONE
     Dates: end: 20181114
  4. CYTARABINE. [Suspect]
     Active Substance: CYTARABINE
     Dates: end: 20181017
  5. DAUNORUBICIN [Suspect]
     Active Substance: DAUNORUBICIN
     Dates: end: 20181102
  6. METHOTREXATE. [Suspect]
     Active Substance: METHOTREXATE
     Dates: end: 20181026

REACTIONS (4)
  - Acute respiratory failure [None]
  - Sinus disorder [None]
  - Computerised tomogram abnormal [None]
  - Lung disorder [None]

NARRATIVE: CASE EVENT DATE: 20181109
